FAERS Safety Report 12381841 (Version 3)
Quarter: 2016Q2

REPORT INFORMATION
  Report Type: Report from Study
  Country: CH (occurrence: CH)
  Receive Date: 20160518
  Receipt Date: 20160523
  Transmission Date: 20160815
  Serious: Yes (Hospitalization)
  Sender: FDA-Public Use
  Company Number: CH-ABBVIE-16P-151-1628680-00

PATIENT
  Sex: Male

DRUGS (4)
  1. DUODOPA [Suspect]
     Active Substance: CARBIDOPA\LEVODOPA
     Indication: PARKINSON^S DISEASE
     Dosage: MD: 8.8 ML; CR: 3.6 ML/H; ED: 1.0 ML
     Route: 050
     Dates: start: 20140128
  2. DUODOPA [Suspect]
     Active Substance: CARBIDOPA\LEVODOPA
     Dosage: CONTINUOUS RATE: 1ML/H
     Route: 050
  3. DUODOPA [Suspect]
     Active Substance: CARBIDOPA\LEVODOPA
     Dosage: MD: 7.5 ML, CR DAY: 1.7 ML/H, ED: 1.0 ML
     Route: 050
  4. DUODOPA [Suspect]
     Active Substance: CARBIDOPA\LEVODOPA
     Route: 050

REACTIONS (11)
  - Hyperkinesia [Unknown]
  - Underdose [Unknown]
  - Atelectasis [Recovering/Resolving]
  - Akinesia [Unknown]
  - Hyperhidrosis [Unknown]
  - Infection [Unknown]
  - Chronic obstructive pulmonary disease [Recovering/Resolving]
  - Pulmonary fibrosis [Recovering/Resolving]
  - Dyskinesia [Recovering/Resolving]
  - Pneumonia [Recovering/Resolving]
  - Aspiration [Recovering/Resolving]
